FAERS Safety Report 5140071-0 (Version None)
Quarter: 2006Q4

REPORT INFORMATION
  Report Type: 
  Country: None (occurrence: None)
  Receive Date: 20061031
  Receipt Date: 20060531
  Transmission Date: 20070319
  Serious: Yes (Death, Life-Threatening, Hospitalization, Disabling, Other)
  Sender: FDA-Public Use
  Company Number: US-NOVOPROD-253760

PATIENT
  Age: 69 Year
  Sex: Male
  Weight: 70 kg

DRUGS (6)
  1. DOCUSATE SODIUM [Concomitant]
     Dosage: 200 MG, QD
     Route: 050
     Dates: start: 20060528
  2. PEPCID                             /00706001/ [Concomitant]
     Dosage: 40 MG, QD
     Route: 042
     Dates: start: 20060528
  3. SIMVASTATIN [Concomitant]
     Dosage: 20 MG, QD
     Route: 050
     Dates: start: 20060528
  4. METOPROLOL TARTRATE [Concomitant]
     Dosage: 50 MG, QD
     Route: 050
     Dates: start: 20060528
  5. HYDROCHLOROTHIAZIDE [Concomitant]
     Dosage: 25 MG, QD
     Route: 050
     Dates: start: 20060529, end: 20060529
  6. NOVOSEVEN [Suspect]
     Indication: CEREBRAL HAEMORRHAGE
     Dosage: 80 UG/KG, UNK
     Route: 042
     Dates: start: 20060528, end: 20060528

REACTIONS (4)
  - ACUTE MYOCARDIAL INFARCTION [None]
  - BLOOD PRESSURE INCREASED [None]
  - BRAIN OEDEMA [None]
  - CEREBRAL INFARCTION [None]
